FAERS Safety Report 5008683-2 (Version None)
Quarter: 2006Q2

REPORT INFORMATION
  Report Type: 
  Country: None (occurrence: None)
  Receive Date: 20060523
  Receipt Date: 20060512
  Transmission Date: 20061013
  Serious: Yes (Other)
  Sender: FDA-Public Use
  Company Number: FR-GLAXOSMITHKLINE-B0424586A

PATIENT
  Sex: Male

DRUGS (3)
  1. KIVEXA [Suspect]
     Indication: HIV INFECTION
     Route: 048
  2. KALETRA [Suspect]
     Indication: HIV INFECTION
     Route: 065
  3. FUCIDINE CAP [Suspect]
     Route: 065

REACTIONS (2)
  - CELL DEATH [None]
  - HYPERBILIRUBINAEMIA [None]
